FAERS Safety Report 19788567 (Version 1)
Quarter: 2021Q3

REPORT INFORMATION
  Report Type: Other
  Country: SE (occurrence: SE)
  Receive Date: 20210903
  Receipt Date: 20210903
  Transmission Date: 20211014
  Serious: Yes (Other)
  Sender: FDA-Public Use
  Company Number: SE-CELLTRION INC.-2021SE011769

PATIENT

DRUGS (8)
  1. ALLOPURINOL. [Concomitant]
     Active Substance: ALLOPURINOL
     Dosage: 100 MG
     Route: 048
  2. ASACOL [Concomitant]
     Active Substance: MESALAMINE
     Dosage: 500 MG 1X1
     Route: 054
  3. REMSIMA [Suspect]
     Active Substance: INFLIXIMAB
     Dosage: 500 MG
     Route: 042
     Dates: start: 20210707, end: 20210707
  4. ASACOL [Concomitant]
     Active Substance: MESALAMINE
     Dosage: 800 MG 6X1
     Route: 048
  5. REMSIMA [Suspect]
     Active Substance: INFLIXIMAB
     Indication: COLITIS ULCERATIVE
     Dosage: 500 MG
     Route: 042
     Dates: start: 20210618, end: 20210618
  6. REMSIMA [Suspect]
     Active Substance: INFLIXIMAB
     Dosage: 500 MG
     Route: 042
     Dates: start: 20210707, end: 20210707
  7. REMSIMA [Suspect]
     Active Substance: INFLIXIMAB
     Dosage: 500 MG
     Route: 042
     Dates: start: 20210618, end: 20210618
  8. AZATHIOPRINE. [Concomitant]
     Active Substance: AZATHIOPRINE
     Dosage: 50 MG PM
     Route: 048

REACTIONS (2)
  - Off label use [Unknown]
  - Hypersensitivity [Recovered/Resolved]

NARRATIVE: CASE EVENT DATE: 20210707
